FAERS Safety Report 12109793 (Version 1)
Quarter: 2016Q1

REPORT INFORMATION
  Report Type: Spontaneous
  Country: US (occurrence: None)
  Receive Date: 20160222
  Receipt Date: 20160222
  Transmission Date: 20160526
  Serious: Yes (Hospitalization)
  Sender: FDA-Public Use
  Company Number: None

PATIENT
  Age: 53 Year
  Sex: Male
  Weight: 74.45 kg

DRUGS (2)
  1. TAXOTERE [Suspect]
     Active Substance: DOCETAXEL
     Dates: end: 20160113
  2. ERBITUX [Suspect]
     Active Substance: CETUXIMAB
     Dates: end: 20160113

REACTIONS (13)
  - Trismus [None]
  - Fatigue [None]
  - Radiation skin injury [None]
  - Inflammation [None]
  - Skin exfoliation [None]
  - Scab [None]
  - Asthenia [None]
  - Salivary hypersecretion [None]
  - Dysphagia [None]
  - Superinfection [None]
  - Pain [None]
  - Mucosal inflammation [None]
  - Dermatitis contact [None]

NARRATIVE: CASE EVENT DATE: 20160209
